FAERS Safety Report 9309989 (Version 2)
Quarter: 2013Q4

REPORT INFORMATION
  Report Type: Spontaneous
  Country: DE (occurrence: DE)
  Receive Date: 20130527
  Receipt Date: 20131031
  Transmission Date: 20140711
  Serious: Yes (Hospitalization)
  Sender: FDA-Public Use
  Company Number: DE-BIOGENIDEC-2013BI046296

PATIENT
  Age: 57 Year
  Sex: Female
  Weight: 62 kg

DRUGS (6)
  1. AVONEX [Suspect]
     Indication: MULTIPLE SCLEROSIS
     Route: 030
     Dates: start: 20000301
  2. IBUFROFEN [Concomitant]
     Indication: PROPHYLAXIS
     Dates: start: 20000301
  3. SPASMEX [Concomitant]
     Indication: MICTURITION URGENCY
  4. TOLPERISON [Concomitant]
     Indication: MUSCLE SPASTICITY
     Dates: start: 2013
  5. AMINEURIN [Concomitant]
     Indication: DEPRESSION
  6. PANTOZOL [Concomitant]
     Indication: GASTROOESOPHAGEAL REFLUX DISEASE

REACTIONS (4)
  - Hypertension [Recovered/Resolved with Sequelae]
  - Cystitis [Recovered/Resolved]
  - Gait disturbance [Not Recovered/Not Resolved]
  - Urinary tract infection [Recovered/Resolved with Sequelae]
